FAERS Safety Report 21903773 (Version 1)
Quarter: 2023Q1

REPORT INFORMATION
  Report Type: Spontaneous
  Country: US (occurrence: US)
  Receive Date: 20230124
  Receipt Date: 20230124
  Transmission Date: 20230418
  Serious: No
  Sender: FDA-Public Use
  Company Number: US-Millicent Holdings Ltd.-MILL20230020

PATIENT
  Age: 62 Year
  Sex: Female

DRUGS (3)
  1. INTRAROSA [Suspect]
     Active Substance: PRASTERONE
     Indication: Dyspareunia
     Dosage: UNKNOWN
     Route: 067
     Dates: start: 2020
  2. INTRAROSA [Suspect]
     Active Substance: PRASTERONE
     Indication: Blood urine present
  3. INTRAROSA [Suspect]
     Active Substance: PRASTERONE
     Indication: Bladder pain

REACTIONS (2)
  - Product administration error [Not Recovered/Not Resolved]
  - Off label use [Not Recovered/Not Resolved]

NARRATIVE: CASE EVENT DATE: 20200101
